FAERS Safety Report 5900511-3 (Version None)
Quarter: 2008Q3

REPORT INFORMATION
  Report Type: 
  Country: None (occurrence: None)
  Receive Date: 20080926
  Receipt Date: 20080914
  Transmission Date: 20090109
  Serious: Yes (Other)
  Sender: FDA-Public Use
  Company Number: US-PFIZER INC-2008077436

PATIENT
  Sex: Male
  Weight: 215 kg

DRUGS (2)
  1. CHANTIX [Suspect]
     Indication: SMOKING CESSATION THERAPY
     Dates: start: 20080904, end: 20080901
  2. DRUG, UNSPECIFIED [Concomitant]

REACTIONS (3)
  - DYSPHAGIA [None]
  - ILL-DEFINED DISORDER [None]
  - PRURITUS [None]
